FAERS Safety Report 6470193-3 (Version None)
Quarter: 2009Q4

REPORT INFORMATION
  Report Type: 
  Country: None (occurrence: None)
  Receive Date: 20091203
  Receipt Date: 20071217
  Transmission Date: 20100525
  Serious: Yes (Hospitalization)
  Sender: FDA-Public Use
  Company Number: TR-ELI_LILLY_AND_COMPANY-TR200712005097

PATIENT
  Sex: Male
  Weight: 65 kg

DRUGS (3)
  1. HUMULIN 70/30 [Suspect]
     Indication: TYPE 2 DIABETES MELLITUS
     Dosage: 14 U, EACH MORNING
     Route: 058
     Dates: start: 20070801
  2. HUMULIN 70/30 [Suspect]
     Dosage: 5 U, EACH EVENING
     Route: 058
     Dates: start: 20070801
  3. SUPRADYN [Concomitant]
     Dosage: UNK, UNKNOWN
     Route: 065

REACTIONS (1)
  - COLLAPSE OF LUNG [None]
